FAERS Safety Report 9801977 (Version 2)
Quarter: 2014Q1

REPORT INFORMATION
  Report Type: Spontaneous
  Country: CZ (occurrence: CZ)
  Receive Date: 20140107
  Receipt Date: 20140204
  Transmission Date: 20141002
  Serious: Yes (Death, Other)
  Sender: FDA-Public Use
  Company Number: CZ-JNJFOC-20131218127

PATIENT
  Sex: 0

DRUGS (12)
  1. DOXORUBICIN [Suspect]
     Indication: B-CELL LYMPHOMA
     Dosage: GIVEN AS PART OF R-CHOP GROUP
     Route: 042
  2. DOXORUBICIN [Suspect]
     Indication: B-CELL LYMPHOMA
     Dosage: GIVEN AS PART OF R-SQ PROTOCOL AS PART OF PACEBO
     Route: 042
  3. DOXORUBICIN [Suspect]
     Indication: B-CELL LYMPHOMA
     Dosage: GIVEN AS PART OF R-CHOP GROUP
     Route: 065
  4. DOXORUBICIN [Suspect]
     Indication: B-CELL LYMPHOMA
     Dosage: GIVEN AS PART OF R-SQ PROTOCOL AS PART OF PACEBO
     Route: 065
  5. ETOPOSIDE [Suspect]
     Indication: B-CELL LYMPHOMA
     Dosage: GIVEN AS PART OF DOXORUBICIN-ETOPOSIDE REGIMEN (PACEBO)
     Route: 065
  6. METHOTREXATE [Suspect]
     Indication: B-CELL LYMPHOMA
     Dosage: GIVEN AS PART OF METHOTREXATE-IFOSFAMIDE REGIMEN (IVAM) AS PART OF R-SQ PROTOCOL
     Route: 065
  7. IFOSFAMIDE [Suspect]
     Indication: B-CELL LYMPHOMA
     Dosage: GIVEN AS PART OF METHOTREXATE-IFOSFAMIDE REGIMEN (IVAM) AS PART OF R-SQ PROTOCOL
     Route: 065
  8. CYTARABINE [Suspect]
     Indication: B-CELL LYMPHOMA
     Dosage: AS PART OF HAM IN R-SQ PROTOCOL
     Route: 065
  9. CYCLOPHOSPHAMIDE [Suspect]
     Indication: B-CELL LYMPHOMA
     Dosage: AS PART OF R-CHOP THERAPY
     Route: 065
  10. RITUXIMAB [Suspect]
     Indication: B-CELL LYMPHOMA
     Dosage: AS PART OF R-CHOP THERAPY
     Route: 065
  11. VINCRISTINE [Suspect]
     Indication: B-CELL LYMPHOMA
     Dosage: GIVEN AS PART OF R-CHOP THERAPY
     Route: 065
  12. PREDNISONE [Suspect]
     Indication: B-CELL LYMPHOMA
     Dosage: GIVEN AS PART OF R-CHOP THERAPY
     Route: 065

REACTIONS (3)
  - Death [Fatal]
  - B-cell lymphoma [Unknown]
  - Lymphoma [Unknown]
